FAERS Safety Report 8201722-7 (Version None)
Quarter: 2012Q1

REPORT INFORMATION
  Report Type: 
  Country: None (occurrence: None)
  Receive Date: 20120312
  Receipt Date: 20120305
  Transmission Date: 20120608
  Serious: Yes (Other)
  Sender: FDA-Public Use
  Company Number: US-BAYER-2012-012652

PATIENT
  Age: 29 Year
  Sex: Female
  Weight: 63.492 kg

DRUGS (2)
  1. MIRENA [Suspect]
     Indication: CONTRACEPTION
     Dosage: 20 MCG/24HR, UNK
     Route: 015
     Dates: start: 20111216, end: 20120210
  2. ZEPHIRAN [Concomitant]
     Dosage: UNK
     Dates: start: 20111216

REACTIONS (4)
  - PROCEDURAL PAIN [None]
  - VAGINAL HAEMORRHAGE [None]
  - ABDOMINAL PAIN [None]
  - DEVICE DISLOCATION [None]
